FAERS Safety Report 9026716 (Version 2)
Quarter: 2013Q1

REPORT INFORMATION
  Report Type: Spontaneous
  Country: US (occurrence: US)
  Receive Date: 20130123
  Receipt Date: 20130205
  Transmission Date: 20140127
  Serious: Yes (Hospitalization)
  Sender: FDA-Public Use
  Company Number: US-SANOFI-AVENTIS-2013SA002616

PATIENT
  Age: 61 Year
  Sex: Female

DRUGS (1)
  1. ARAVA [Suspect]

REACTIONS (1)
  - Knee arthroplasty [Unknown]
